FAERS Safety Report 25425777 (Version 1)
Quarter: 2025Q2

REPORT INFORMATION
  Report Type: Spontaneous
  Country: FR (occurrence: FR)
  Receive Date: 20250611
  Receipt Date: 20250611
  Transmission Date: 20250716
  Serious: Yes (Hospitalization)
  Sender: TEVA
  Company Number: None

PATIENT
  Age: 71 Year
  Sex: Female
  Weight: 74 kg

DRUGS (3)
  1. LOSARTAN [Interacting]
     Active Substance: LOSARTAN
     Indication: Hypertension
     Dosage: LOSARTAN POTASSIUM (INTERACTING)
     Route: 048
     Dates: end: 20250313
  2. TERALITHE [Interacting]
     Active Substance: LITHIUM CARBONATE
     Indication: Bipolar disorder
     Dosage: LP, EXTENDED RELEASE SCORED TABLET
     Route: 048
     Dates: end: 20250313
  3. HYDROCHLOROTHIAZIDE [Interacting]
     Active Substance: HYDROCHLOROTHIAZIDE
     Indication: Hypertension
     Route: 048
     Dates: end: 20250313

REACTIONS (10)
  - General physical health deterioration [Recovered/Resolved]
  - Somnolence [Recovered/Resolved]
  - Drug interaction [Recovered/Resolved]
  - Acute kidney injury [Recovered/Resolved]
  - Speech disorder [Recovered/Resolved]
  - Incoherent [Recovered/Resolved]
  - Nausea [Recovered/Resolved]
  - Diarrhoea [Recovered/Resolved]
  - Drug level increased [Recovered/Resolved]
  - Vomiting [Recovered/Resolved]

NARRATIVE: CASE EVENT DATE: 20250401
